FAERS Safety Report 13371299 (Version 1)
Quarter: 2017Q1

REPORT INFORMATION
  Report Type: Spontaneous
  Country: US (occurrence: US)
  Receive Date: 20170324
  Receipt Date: 20170324
  Transmission Date: 20170429
  Serious: No
  Sender: FDA-Public Use
  Company Number: US-ELI_LILLY_AND_COMPANY-US201607010373

PATIENT
  Age: 49 Year
  Sex: Female
  Weight: 130 kg

DRUGS (1)
  1. CYMBALTA [Suspect]
     Active Substance: DULOXETINE HYDROCHLORIDE
     Indication: FIBROMYALGIA
     Dosage: UNK, UNKNOWN
     Route: 065

REACTIONS (11)
  - Insomnia [Unknown]
  - Affect lability [Unknown]
  - Dizziness [Recovered/Resolved]
  - Vertigo [Unknown]
  - Nausea [Unknown]
  - Headache [Recovered/Resolved]
  - Paraesthesia [Unknown]
  - Diarrhoea [Recovered/Resolved]
  - Alanine aminotransferase increased [Unknown]
  - Drug ineffective [Unknown]
  - Drug withdrawal syndrome [Unknown]

NARRATIVE: CASE EVENT DATE: 20141208
